FAERS Safety Report 11270447 (Version 1)
Quarter: 2015Q3

REPORT INFORMATION
  Report Type: Spontaneous
  Country: FR (occurrence: FR)
  Receive Date: 20150714
  Receipt Date: 20150714
  Transmission Date: 20151125
  Serious: Yes (Death, Other)
  Sender: FDA-Public Use
  Company Number: FR-CELGENE-FRA-2015071634

PATIENT
  Age: 65 Year
  Sex: Female
  Weight: 55 kg

DRUGS (19)
  1. MYLOTARG [Suspect]
     Active Substance: GEMTUZUMAB OZOGAMICIN
     Indication: ACUTE MYELOID LEUKAEMIA
     Route: 065
     Dates: start: 20090112, end: 20090118
  2. CYTARABINE. [Suspect]
     Active Substance: CYTARABINE
     Route: 041
     Dates: start: 20090417
  3. HEPARIN [Concomitant]
     Active Substance: HEPARIN SODIUM
     Indication: PROPHYLAXIS
     Route: 065
     Dates: start: 20100210
  4. CYTARABINE. [Suspect]
     Active Substance: CYTARABINE
     Indication: ACUTE MYELOID LEUKAEMIA
     Route: 065
     Dates: start: 20090112, end: 20090118
  5. IDARUBICIN [Suspect]
     Active Substance: IDARUBICIN
     Indication: ACUTE MYELOID LEUKAEMIA
     Route: 065
     Dates: start: 20091204
  6. CYTARABINE. [Suspect]
     Active Substance: CYTARABINE
     Route: 065
     Dates: start: 20090307, end: 20090309
  7. CYTARABINE. [Suspect]
     Active Substance: CYTARABINE
     Dosage: 3 MILLIGRAM/KILOGRAM
     Route: 065
     Dates: start: 20090310
  8. DAUNORUBICIN HYDROCHLORIDE. [Suspect]
     Active Substance: DAUNORUBICIN HYDROCHLORIDE
     Route: 065
     Dates: start: 20090417
  9. CICLOSPORIN [Concomitant]
     Active Substance: CYCLOSPORINE
     Indication: PROPHYLAXIS AGAINST GRAFT VERSUS HOST DISEASE
     Route: 065
     Dates: start: 20100215
  10. MYLOTARG [Suspect]
     Active Substance: GEMTUZUMAB OZOGAMICIN
     Route: 041
     Dates: start: 20090417
  11. DAUNORUBICIN HYDROCHLORIDE. [Suspect]
     Active Substance: DAUNORUBICIN HYDROCHLORIDE
     Route: 065
     Dates: start: 20090306
  12. FLUDARABINE [Suspect]
     Active Substance: FLUDARABINE PHOSPHATE
     Indication: ACUTE MYELOID LEUKAEMIA
     Route: 041
     Dates: start: 20100210, end: 20100214
  13. REVLIMID [Suspect]
     Active Substance: LENALIDOMIDE
     Indication: ACUTE MYELOID LEUKAEMIA
     Route: 048
     Dates: start: 20091204
  14. ARACYTINE [Suspect]
     Active Substance: CYTARABINE
     Indication: ACUTE MYELOID LEUKAEMIA
     Dosage: 168 MILLIGRAM
     Route: 065
     Dates: start: 20091204
  15. MYLOTARG [Suspect]
     Active Substance: GEMTUZUMAB OZOGAMICIN
     Dosage: 45 MILLIGRAM
     Route: 065
     Dates: start: 20090306
  16. CYTARABINE. [Suspect]
     Active Substance: CYTARABINE
     Route: 065
     Dates: start: 20090306
  17. DAUNORUBICIN HYDROCHLORIDE. [Suspect]
     Active Substance: DAUNORUBICIN HYDROCHLORIDE
     Indication: ACUTE MYELOID LEUKAEMIA
     Dosage: 130 MILLIGRAM
     Route: 065
     Dates: start: 20090112, end: 20090114
  18. BUSILVEX [Suspect]
     Active Substance: BUSULFAN
     Indication: ACUTE MYELOID LEUKAEMIA
     Route: 041
     Dates: start: 20100211, end: 20100212
  19. THYMOGLOBULIN [Concomitant]
     Active Substance: LAPINE T-LYMPHOCYTE IMMUNE GLOBULIN
     Indication: PRODUCT USED FOR UNKNOWN INDICATION
     Route: 041
     Dates: start: 20100213, end: 20100214

REACTIONS (5)
  - Venoocclusive liver disease [Not Recovered/Not Resolved]
  - Acute pulmonary oedema [Unknown]
  - Cardiac failure [Unknown]
  - Escherichia urinary tract infection [Unknown]
  - Respiratory distress [Fatal]

NARRATIVE: CASE EVENT DATE: 20100207
